FAERS Safety Report 22589585 (Version 1)
Quarter: 2023Q2

REPORT INFORMATION
  Report Type: Spontaneous
  Country: GB (occurrence: GB)
  Receive Date: 20230612
  Receipt Date: 20230612
  Transmission Date: 20230721
  Serious: Yes (Hospitalization)
  Sender: FDA-Public Use
  Company Number: None

PATIENT
  Sex: Female

DRUGS (10)
  1. PREGABALIN [Suspect]
     Active Substance: PREGABALIN
     Indication: Product used for unknown indication
     Dosage: 50 MILLIGRAM, QD (50MG ON)
     Route: 065
  2. PROMETHAZINE HYDROCHLORIDE [Suspect]
     Active Substance: PROMETHAZINE HYDROCHLORIDE
     Indication: Product used for unknown indication
     Dosage: 10 MILLIGRAM, QD, (10MG ON)
     Route: 065
     Dates: start: 20230503
  3. ATORVASTATIN [Concomitant]
     Active Substance: ATORVASTATIN
     Dosage: 20 MILLIGRAM, QD (20MG ON SHE STOPPED TAKING A TAB BUT HAS FORGOTTEN WHY)
     Route: 065
  4. CLOPIDOGREL [Concomitant]
     Active Substance: CLOPIDOGREL BISULFATE
     Dosage: 75 MILLIGRAM, QD (75MG OM AFTER BREAKFAST)
     Route: 065
  5. FLUCLOXACILLIN [Concomitant]
     Active Substance: FLUCLOXACILLIN
     Dosage: 500 MILLIGRAM, QID (500MG QDS FOR 7/7)
     Route: 065
     Dates: start: 20230502
  6. HYDROXOCOBALAMIN [Concomitant]
     Active Substance: HYDROXOCOBALAMIN
     Dosage: UNK
     Route: 065
     Dates: start: 20230316
  7. IBUPROFEN [Concomitant]
     Active Substance: IBUPROFEN
     Dosage: 5 PERCENT (5 PERCENT GEL, APPLY TDS PRN)
     Route: 065
     Dates: start: 20230201
  8. LEVOTHYROXINE [Concomitant]
     Active Substance: LEVOTHYROXINE
     Dosage: 75 MICROGRAM, QD (75MICROGRAMS OM)
     Route: 065
  9. NITROFURANTOIN [Concomitant]
     Active Substance: NITROFURANTOIN
     Dosage: 100 MILLIGRAM, BID (100MG BD FOR 5/7)
     Route: 065
     Dates: start: 20230308
  10. ACETAMINOPHEN [Concomitant]
     Active Substance: ACETAMINOPHEN
     Dosage: 1 GRAM (1G QDS PRN - TAKES ON)
     Route: 065

REACTIONS (1)
  - Fall [Recovered/Resolved with Sequelae]
